FAERS Safety Report 8803459 (Version 1)
Quarter: 2012Q4

REPORT INFORMATION
  Report Type: Report from Study
  Country: JP (occurrence: JP)
  Receive Date: 20120924
  Receipt Date: 20120924
  Transmission Date: 20130627
  Serious: Yes (Death, Other)
  Sender: FDA-Public Use
  Company Number: PHHY2009JP13823

PATIENT
  Age: 64 Year
  Sex: Male
  Weight: 65 kg

DRUGS (8)
  1. ICL670A [Suspect]
     Indication: IRON OVERLOAD
     Dosage: 1000 mg, UNK
     Route: 048
     Dates: start: 20080815, end: 20080926
  2. DESFERAL [Concomitant]
     Dosage: UNK UKN, UNK
     Route: 042
     Dates: start: 20080328, end: 20080806
  3. CIPROXAN [Concomitant]
     Dosage: 300 mg, UNK
     Route: 048
     Dates: start: 20080815, end: 20080822
  4. GASMOTIN [Concomitant]
     Dosage: 15 mg, UNK
     Route: 048
     Dates: start: 20080815, end: 20080822
  5. CALONAL [Concomitant]
     Dosage: 500 mg, UNK
     Route: 048
     Dates: start: 20080815, end: 20080822
  6. ITRIZOLE [Concomitant]
     Dosage: 200 mg, UNK
     Route: 048
     Dates: start: 20080822, end: 20081024
  7. BAKTAR [Concomitant]
     Dosage: 4 DF, UNK
     Route: 048
     Dates: start: 20080822, end: 20081024
  8. FLOMOX [Concomitant]
     Dosage: 300 mg, UNK
     Route: 048
     Dates: start: 20080917, end: 20081031

REACTIONS (5)
  - Acute myeloid leukaemia [Fatal]
  - Malignant neoplasm progression [Fatal]
  - Pneumonia [Not Recovered/Not Resolved]
  - Rash [Recovered/Resolved]
  - White blood cell count decreased [Unknown]
